FAERS Safety Report 5509716-7 (Version None)
Quarter: 2007Q4

REPORT INFORMATION
  Report Type: 
  Country: None (occurrence: None)
  Receive Date: 20071107
  Receipt Date: 20071107
  Transmission Date: 20080405
  Serious: No
  Sender: FDA-Public Use
  Company Number: None

PATIENT
  Age: 57 Year
  Sex: Male
  Weight: 111.1313 kg

DRUGS (1)
  1. EMSAM [Suspect]
     Indication: MAJOR DEPRESSION
     Dosage: 24 HRS CUTANEOUS
     Route: 003

REACTIONS (1)
  - PHARMACEUTICAL PRODUCT COMPLAINT [None]
